FAERS Safety Report 6970590-3 (Version None)
Quarter: 2010Q3

REPORT INFORMATION
  Report Type: 
  Country: None (occurrence: None)
  Receive Date: 20100908
  Receipt Date: 20100827
  Transmission Date: 20110219
  Serious: Yes (Other)
  Sender: FDA-Public Use
  Company Number: PHHY2010NZ56862

PATIENT
  Sex: Male

DRUGS (4)
  1. GLEEVEC [Suspect]
     Indication: CHRONIC MYELOID LEUKAEMIA
     Dosage: 400 MG DAILY
     Dates: start: 20100101
  2. GLEEVEC [Suspect]
     Dosage: 600 MG DAILY
     Dates: start: 20100421
  3. GLEEVEC [Suspect]
     Dosage: 800 MG DAILY
     Dates: start: 20100707
  4. GLEEVEC [Suspect]
     Dosage: 300 MG, BID
     Dates: start: 20100818

REACTIONS (1)
  - ARTHROPATHY [None]
